FAERS Safety Report 9973020 (Version 2)
Quarter: 2015Q1

REPORT INFORMATION
  Report Type: Spontaneous
  Country: US (occurrence: None)
  Receive Date: 20140131
  Receipt Date: 20150129
  Transmission Date: 20150721
  Serious: Yes (Hospitalization)
  Sender: FDA-Public Use
  Company Number: 102007

PATIENT
  Age: 21 Year
  Sex: Female
  Weight: 61.2 kg

DRUGS (7)
  1. LAMOTRIGINE. [Concomitant]
     Active Substance: LAMOTRIGINE
  2. OMEPRAZOLE. [Concomitant]
     Active Substance: OMEPRAZOLE
  3. DEPAKOTE [Concomitant]
     Active Substance: DIVALPROEX SODIUM
  4. VITAMIN B12 [Concomitant]
     Active Substance: CYANOCOBALAMIN
  5. KEPPRA [Suspect]
     Active Substance: LEVETIRACETAM
     Indication: SEIZURE
     Dosage: 1000 MG EVERY MORNING AND 2000 MG EVERY NIGHT
     Dates: start: 201302, end: 2013
  6. KEPPRA [Concomitant]
     Active Substance: LEVETIRACETAM
     Dosage: PIL, ORAL
     Route: 048
     Dates: start: 2013
  7. FOLIC ACID. [Concomitant]
     Active Substance: FOLIC ACID

REACTIONS (1)
  - Seizure [None]

NARRATIVE: CASE EVENT DATE: 2013
